FAERS Safety Report 5276810-8 (Version None)
Quarter: 2007Q1

REPORT INFORMATION
  Report Type: 
  Country: None (occurrence: None)
  Receive Date: 20070327
  Receipt Date: 20070321
  Transmission Date: 20070707
  Serious: Yes (Hospitalization, Other)
  Sender: FDA-Public Use
  Company Number: US-JNJFOC-20040303070

PATIENT
  Sex: Female
  Weight: 74.39 kg

DRUGS (12)
  1. DURAGESIC-100 [Suspect]
     Route: 062
  2. DURAGESIC-100 [Suspect]
     Route: 062
  3. DURAGESIC-100 [Suspect]
     Indication: PAIN
     Route: 062
  4. VICODIN [Concomitant]
  5. TRAZODONE HCL [Concomitant]
  6. RISPERDAL [Concomitant]
     Route: 048
  7. MOBIC [Concomitant]
  8. PROTONIX [Concomitant]
     Route: 048
  9. NEURONTIN [Concomitant]
  10. NEURONTIN [Concomitant]
  11. REFALIN [Concomitant]
  12. HYDROCODONE [Concomitant]

REACTIONS (6)
  - APPLICATION SITE ABSCESS [None]
  - APPLICATION SITE SCAR [None]
  - DEVICE FAILURE [None]
  - IRRITABLE BOWEL SYNDROME [None]
  - MICROCYTIC ANAEMIA [None]
  - STAPHYLOCOCCAL INFECTION [None]
